FAERS Safety Report 21861148 (Version 9)
Quarter: 2023Q4

REPORT INFORMATION
  Report Type: Spontaneous
  Country: US (occurrence: US)
  Receive Date: 20230113
  Receipt Date: 20231121
  Transmission Date: 20240109
  Serious: Yes (Hospitalization)
  Sender: FDA-Public Use
  Company Number: US-PFIZER INC-PV202300003932

PATIENT
  Age: 83 Year
  Sex: Female
  Weight: 57.59 kg

DRUGS (1)
  1. IBRANCE [Suspect]
     Active Substance: PALBOCICLIB
     Indication: Breast cancer
     Dosage: 125 MG

REACTIONS (8)
  - Stress [Recovered/Resolved]
  - Fall [Unknown]
  - Respiratory disorder [Unknown]
  - Cough [Unknown]
  - Rotator cuff syndrome [Unknown]
  - Limb discomfort [Recovered/Resolved]
  - Pain in extremity [Unknown]
  - Limb injury [Unknown]

NARRATIVE: CASE EVENT DATE: 20230501
